FAERS Safety Report 7594741-5 (Version None)
Quarter: 2011Q3

REPORT INFORMATION
  Report Type: 
  Country: None (occurrence: None)
  Receive Date: 20110707
  Receipt Date: 20110628
  Transmission Date: 20111222
  Serious: Yes (Death, Other)
  Sender: FDA-Public Use
  Company Number: DE-JNJFOC-20091100153

PATIENT
  Age: 42 Year
  Sex: Male
  Weight: 73 kg

DRUGS (9)
  1. NICOTINE [Interacting]
     Indication: PRODUCT USED FOR UNKNOWN INDICATION
     Route: 048
  2. TRAMADOL HCL [Suspect]
     Indication: ILL-DEFINED DISORDER
     Route: 048
  3. ACETAMINOPHEN [Suspect]
     Indication: ILL-DEFINED DISORDER
     Route: 048
  4. UNKNOWN MEDICATION [Suspect]
     Indication: PRODUCT USED FOR UNKNOWN INDICATION
     Route: 065
  5. DIPHENHYDRAMINE HCL [Suspect]
     Indication: ILL-DEFINED DISORDER
     Route: 048
  6. CAFFEINE CITRATE [Suspect]
     Indication: PRODUCT USED FOR UNKNOWN INDICATION
     Route: 065
  7. ZOPICLONE [Suspect]
     Indication: PRODUCT USED FOR UNKNOWN INDICATION
     Route: 065
  8. NICOTINE [Interacting]
     Indication: ILL-DEFINED DISORDER
     Dosage: TOTAL DOSE: 175 MG
     Route: 062
  9. ETHANOL [Suspect]
     Indication: PRODUCT USED FOR UNKNOWN INDICATION
     Route: 065

REACTIONS (14)
  - COMPLETED SUICIDE [None]
  - DRUG INTERACTION [None]
  - MYOCARDIAL INFARCTION [None]
  - GASTRIC MUCOSA ERYTHEMA [None]
  - CARDIO-RESPIRATORY ARREST [None]
  - MULTIPLE DRUG OVERDOSE INTENTIONAL [None]
  - PULMONARY OEDEMA [None]
  - CARDIAC FAILURE [None]
  - DEPRESSED LEVEL OF CONSCIOUSNESS [None]
  - VISCERAL CONGESTION [None]
  - PETECHIAE [None]
  - TOXICITY TO VARIOUS AGENTS [None]
  - BRAIN OEDEMA [None]
  - BLADDER DISORDER [None]
